FAERS Safety Report 20809470 (Version 1)
Quarter: 2022Q2

REPORT INFORMATION
  Report Type: Report from Study
  Country: CA (occurrence: CA)
  Receive Date: 20220510
  Receipt Date: 20220510
  Transmission Date: 20220720
  Serious: Yes (Other)
  Sender: FDA-Public Use
  Company Number: CA-TAKEDA-2022TUS020498

PATIENT
  Age: 29 Year
  Sex: Female

DRUGS (7)
  1. LANADELUMAB [Suspect]
     Active Substance: LANADELUMAB
     Indication: Hereditary angioedema
     Dosage: UNK
     Route: 065
  2. POLYSACCHARIDES NOS [Concomitant]
     Indication: Anaemia
     Dosage: 300 MILLIGRAM
     Route: 048
     Dates: start: 20210909
  3. TOPISONE [Concomitant]
     Indication: Eczema
     Dosage: 0.05 DOSAGE FORM
     Route: 062
     Dates: start: 20210909
  4. BETAMETHASONE\SALICYLIC ACID [Concomitant]
     Active Substance: BETAMETHASONE\SALICYLIC ACID
     Indication: Eczema
     Dosage: 30 MILLILITER
     Route: 061
     Dates: start: 20210909
  5. CHOLECALCIFEROL\FISH OIL [Concomitant]
     Active Substance: CHOLECALCIFEROL\FISH OIL
     Indication: Vitamin supplementation
     Dosage: 5 MILLILITER
     Route: 048
     Dates: start: 20210909
  6. CETIRIZINE [Concomitant]
     Active Substance: CETIRIZINE HYDROCHLORIDE
     Indication: Seasonal allergy
     Dosage: 10 MILLIGRAM
     Route: 048
     Dates: start: 20220306
  7. FERROUS SULFATE [Concomitant]
     Active Substance: FERROUS SULFATE
     Indication: Anaemia
     Dosage: 150 MILLIGRAM
     Route: 048
     Dates: start: 202112

REACTIONS (4)
  - Anaphylactic reaction [Not Recovered/Not Resolved]
  - Notalgia paraesthetica [Not Recovered/Not Resolved]
  - Hypersensitivity [Not Recovered/Not Resolved]
  - Hereditary angioedema [Recovered/Resolved]

NARRATIVE: CASE EVENT DATE: 20210910
